FAERS Safety Report 6372528-9 (Version None)
Quarter: 2009Q3

REPORT INFORMATION
  Report Type: 
  Country: None (occurrence: None)
  Receive Date: 20090924
  Receipt Date: 20080923
  Transmission Date: 20100115
  Serious: No
  Sender: FDA-Public Use
  Company Number: US-ASTRAZENECA-2008UW19981

PATIENT
  Age: 57 Year
  Sex: Female

DRUGS (6)
  1. SEROQUEL XR [Suspect]
     Indication: BIPOLAR DISORDER
     Route: 048
     Dates: start: 20080401
  2. SEROQUEL XR [Suspect]
     Indication: SCHIZOPHRENIA
     Route: 048
     Dates: start: 20080401
  3. SEROQUEL XR [Suspect]
     Indication: GENERALISED ANXIETY DISORDER
     Route: 048
     Dates: start: 20080401
  4. SEROQUEL XR [Suspect]
     Indication: DEPRESSION
     Route: 048
     Dates: start: 20080401
  5. SEROQUEL [Concomitant]
     Indication: GENERALISED ANXIETY DISORDER
     Dosage: DIVIDED DOSES
     Dates: start: 20070401, end: 20080401
  6. SEROQUEL [Concomitant]
     Indication: DEPRESSION
     Dosage: DIVIDED DOSES
     Dates: start: 20070401, end: 20080401

REACTIONS (5)
  - DYSGRAPHIA [None]
  - GAIT DISTURBANCE [None]
  - MUSCLE RIGIDITY [None]
  - MUSCULOSKELETAL STIFFNESS [None]
  - MYALGIA [None]
